FAERS Safety Report 22317267 (Version 1)
Quarter: 2023Q2

REPORT INFORMATION
  Report Type: Spontaneous
  Country: IN (occurrence: IN)
  Receive Date: 20230515
  Receipt Date: 20230515
  Transmission Date: 20230722
  Serious: Yes (Death)
  Sender: FDA-Public Use
  Company Number: IN-GLENMARK PHARMACEUTICALS-2023GMK081700

PATIENT

DRUGS (1)
  1. AXITINIB [Suspect]
     Active Substance: AXITINIB
     Indication: Renal cell carcinoma
     Dosage: 1 DOSAGE FORM, QD
     Route: 048
     Dates: start: 2022, end: 202301

REACTIONS (4)
  - Disease progression [Fatal]
  - Mouth ulceration [Unknown]
  - Mouth swelling [Unknown]
  - Diarrhoea [Unknown]
